FAERS Safety Report 6521388-1 (Version None)
Quarter: 2009Q4

REPORT INFORMATION
  Report Type: 
  Country: None (occurrence: None)
  Receive Date: 20091222
  Receipt Date: 20091204
  Transmission Date: 20100525
  Serious: Yes (Hospitalization, Other)
  Sender: FDA-Public Use
  Company Number: JPI-P-009425

PATIENT
  Age: 19 Year
  Sex: Female
  Weight: 64 kg

DRUGS (1)
  1. XYREM [Suspect]
     Indication: NARCOLEPSY
     Dosage: (6 GM, 1 D), ORAL
     Route: 048
     Dates: start: 20080301, end: 20080501

REACTIONS (2)
  - ABDOMINAL PAIN [None]
  - WEIGHT DECREASED [None]
